FAERS Safety Report 4355930-6 (Version None)
Quarter: 2004Q2

REPORT INFORMATION
  Report Type: 
  Country: None (occurrence: None)
  Receive Date: 20040507
  Receipt Date: 20040429
  Transmission Date: 20050107
  Serious: Yes (Death, Other)
  Sender: FDA-Public Use
  Company Number: 2004028937

PATIENT
  Age: 14 Year
  Sex: Male

DRUGS (2)
  1. ZANTAC [Suspect]
     Indication: ABDOMINAL PAIN UPPER
     Dosage: ORAL
     Route: 048
  2. ANTIPSYCHOTICS [Concomitant]

REACTIONS (3)
  - COMA [None]
  - PSYCHOTIC DISORDER [None]
  - RESPIRATORY FAILURE [None]
